FAERS Safety Report 11391760 (Version 2)
Quarter: 2015Q3

REPORT INFORMATION
  Report Type: Spontaneous
  Country: US (occurrence: US)
  Receive Date: 20150818
  Receipt Date: 20150921
  Transmission Date: 20151125
  Serious: No
  Sender: FDA-Public Use
  Company Number: US-PFIZER INC-2015270212

PATIENT
  Age: 59 Year
  Sex: Female

DRUGS (4)
  1. PHENYTOIN SODIUM. [Suspect]
     Active Substance: PHENYTOIN SODIUM
     Indication: SEIZURE
     Dosage: 300 MG, 1X/DAY (3 CAPSULES OF 100 MG EVERY NIGHT)
     Route: 048
     Dates: start: 2015, end: 2015
  2. TOPAMAX [Concomitant]
     Active Substance: TOPIRAMATE
     Indication: SEIZURE
     Dosage: UNK
  3. VITAMINS [Concomitant]
     Active Substance: VITAMINS
     Dosage: UNK
  4. PHENYTOIN SODIUM. [Suspect]
     Active Substance: PHENYTOIN SODIUM
     Indication: EPILEPSY

REACTIONS (2)
  - Anticonvulsant drug level decreased [Unknown]
  - Aura [Recovered/Resolved]

NARRATIVE: CASE EVENT DATE: 201503
